FAERS Safety Report 20344652 (Version 1)
Quarter: 2022Q1

REPORT INFORMATION
  Report Type: Spontaneous
  Country: CA (occurrence: CA)
  Receive Date: 20220118
  Receipt Date: 20220118
  Transmission Date: 20220423
  Serious: Yes (Hospitalization, Other)
  Sender: FDA-Public Use
  Company Number: CA-NOVARTISPH-NVSC2022CA001678

PATIENT
  Age: 40 Year
  Sex: Female

DRUGS (27)
  1. COLCHICINE [Suspect]
     Active Substance: COLCHICINE
     Indication: Mouth ulceration
     Dosage: 0.6 MG
     Route: 065
     Dates: start: 202001, end: 202004
  2. METHOTREXATE [Suspect]
     Active Substance: METHOTREXATE
     Indication: Rheumatic fever
     Dosage: 25 UNK
     Route: 058
     Dates: start: 2018
  3. METHOTREXATE [Suspect]
     Active Substance: METHOTREXATE
     Dosage: 15 UNK
     Route: 058
     Dates: start: 202106, end: 202107
  4. METHOTREXATE [Suspect]
     Active Substance: METHOTREXATE
     Dosage: 10 UNK
     Route: 065
     Dates: start: 202107, end: 202108
  5. RITUXIMAB [Concomitant]
     Active Substance: RITUXIMAB
     Indication: Product used for unknown indication
     Dosage: UNK
     Route: 065
  6. PREDNISONE [Concomitant]
     Active Substance: PREDNISONE
     Indication: Product used for unknown indication
     Dosage: 60 UNK
     Route: 048
     Dates: start: 202104
  7. PREDNISONE [Concomitant]
     Active Substance: PREDNISONE
     Dosage: 5 MG, QD
     Route: 048
  8. PREDNISONE [Concomitant]
     Active Substance: PREDNISONE
     Dosage: 60 UNK
     Route: 048
     Dates: start: 202110
  9. PREDNISONE [Concomitant]
     Active Substance: PREDNISONE
     Dosage: UNK
     Route: 048
     Dates: start: 202111
  10. IMURAN [Concomitant]
     Active Substance: AZATHIOPRINE
     Indication: Product used for unknown indication
     Dosage: UNK
     Route: 048
  11. MEDROL [Concomitant]
     Active Substance: METHYLPREDNISOLONE
     Indication: Product used for unknown indication
     Dosage: 20 MG
     Route: 065
     Dates: start: 20200626
  12. MEDROL [Concomitant]
     Active Substance: METHYLPREDNISOLONE
     Dosage: 16 MG
     Route: 065
     Dates: start: 202009
  13. MEDROL [Concomitant]
     Active Substance: METHYLPREDNISOLONE
     Dosage: 24 MG
     Route: 065
     Dates: start: 201911, end: 201912
  14. MEDROL [Concomitant]
     Active Substance: METHYLPREDNISOLONE
     Dosage: 48 MG
     Route: 065
     Dates: start: 201912, end: 202004
  15. MEDROL [Concomitant]
     Active Substance: METHYLPREDNISOLONE
     Dosage: 20 MG
     Route: 065
     Dates: start: 202004, end: 202006
  16. MEDROL [Concomitant]
     Active Substance: METHYLPREDNISOLONE
     Dosage: 40 MG
     Route: 065
     Dates: start: 202006, end: 20200626
  17. MEDROL [Concomitant]
     Active Substance: METHYLPREDNISOLONE
     Dosage: 20 MG
     Route: 065
     Dates: start: 20200626
  18. MEDROL [Concomitant]
     Active Substance: METHYLPREDNISOLONE
     Dosage: 16 MG
     Route: 065
     Dates: start: 202009
  19. MEDROL [Concomitant]
     Active Substance: METHYLPREDNISOLONE
     Dosage: 8 MG
     Route: 065
     Dates: start: 202010, end: 202010
  20. MEDROL [Concomitant]
     Active Substance: METHYLPREDNISOLONE
     Dosage: 6 MG, QD
     Route: 065
     Dates: start: 202010
  21. MEDROL [Concomitant]
     Active Substance: METHYLPREDNISOLONE
     Dosage: 4 MG, QD
     Route: 065
  22. MEDROL [Concomitant]
     Active Substance: METHYLPREDNISOLONE
     Dosage: 2 MG, QD
     Route: 065
     Dates: start: 202101
  23. DEXILANT [Concomitant]
     Active Substance: DEXLANSOPRAZOLE
     Indication: Product used for unknown indication
     Dosage: UNK
     Route: 065
     Dates: start: 202102
  24. INFLIXIMAB [Concomitant]
     Active Substance: INFLIXIMAB
     Indication: Product used for unknown indication
     Dosage: UNK, BIW
     Route: 065
     Dates: start: 202105
  25. INFLIXIMAB [Concomitant]
     Active Substance: INFLIXIMAB
     Dosage: EVERY 6 WEEKS
     Route: 065
  26. INFLIXIMAB [Concomitant]
     Active Substance: INFLIXIMAB
     Dosage: EVERY 8 WEEKS
     Route: 065
  27. INFLECTRA [Concomitant]
     Active Substance: INFLIXIMAB-DYYB
     Indication: Product used for unknown indication
     Dosage: UNK
     Route: 065
     Dates: start: 20210602, end: 20211102

REACTIONS (30)
  - Pain in extremity [Unknown]
  - Suspiciousness [Unknown]
  - Behcet^s syndrome [Unknown]
  - Sjogren^s syndrome [Unknown]
  - Haematuria [Unknown]
  - Polyarthritis [Unknown]
  - Optic neuritis [Recovered/Resolved]
  - Colitis [Unknown]
  - Deafness [Unknown]
  - Gastrointestinal disorder [Unknown]
  - Inflammatory pain [Unknown]
  - Headache [Unknown]
  - Fatigue [Unknown]
  - Pyrexia [Unknown]
  - Arthralgia [Unknown]
  - Nausea [Unknown]
  - Vomiting [Unknown]
  - Diarrhoea [Unknown]
  - Faecal calprotectin [Unknown]
  - Thrombocytosis [Unknown]
  - Inflammation [Unknown]
  - Gastritis [Unknown]
  - Paresis [Recovered/Resolved]
  - Venous thrombosis [Unknown]
  - Intraocular pressure increased [Unknown]
  - Groin pain [Unknown]
  - Eye pain [Unknown]
  - Myositis [Unknown]
  - Drug ineffective [Unknown]
  - Product use in unapproved indication [Unknown]

NARRATIVE: CASE EVENT DATE: 20190101
